FAERS Safety Report 10024281 (Version 2)
Quarter: 2014Q3

REPORT INFORMATION
  Report Type: Spontaneous
  Country: IT (occurrence: IT)
  Receive Date: 20140320
  Receipt Date: 20140710
  Transmission Date: 20150326
  Serious: Yes (Hospitalization)
  Sender: FDA-Public Use
  Company Number: IT-PFIZER INC-2014080253

PATIENT
  Age: 33 Year
  Sex: Female

DRUGS (5)
  1. SERTRALINE HCL [Suspect]
     Active Substance: SERTRALINE HYDROCHLORIDE
     Dosage: UNK
     Dates: start: 20140227, end: 20140227
  2. FELISON [Suspect]
     Active Substance: FLURAZEPAM MONOHYDROCHLORIDE
     Dosage: UNK
     Dates: start: 20140227, end: 20140227
  3. RISPERDAL [Suspect]
     Active Substance: RISPERIDONE
     Dosage: UNK
     Dates: start: 20140227, end: 20140227
  4. CAMPRAL [Suspect]
     Active Substance: ACAMPROSATE CALCIUM
     Dosage: UNK
     Dates: start: 20140227, end: 20140227
  5. DEPAKENE [Suspect]
     Active Substance: VALPROIC ACID
     Dosage: UNK
     Dates: start: 20140227, end: 20140227

REACTIONS (2)
  - Psychomotor skills impaired [Recovering/Resolving]
  - Drug abuse [Recovering/Resolving]

NARRATIVE: CASE EVENT DATE: 20140227
